FAERS Safety Report 21355740 (Version 1)
Quarter: 2022Q3

REPORT INFORMATION
  Report Type: Spontaneous
  Country: US (occurrence: US)
  Receive Date: 20220920
  Receipt Date: 20220920
  Transmission Date: 20221027
  Serious: No
  Sender: FDA-Public Use
  Company Number: US-THERAPEUTICSMD-2021TMD03002

PATIENT
  Age: 24 Year
  Sex: Female
  Weight: 126.53 kg

DRUGS (3)
  1. ANNOVERA [Suspect]
     Active Substance: ETHINYL ESTRADIOL\SEGESTERONE ACETATE
     Indication: Polycystic ovaries
     Dosage: 1 RING
     Route: 067
     Dates: start: 20210919
  2. AMOXICILLIN [Suspect]
     Active Substance: AMOXICILLIN
     Dosage: UNK
     Dates: start: 20211210
  3. ANTIFUNGAL CREAM [Concomitant]
     Active Substance: MICONAZOLE NITRATE

REACTIONS (4)
  - Vaginal haemorrhage [Not Recovered/Not Resolved]
  - Fungal infection [Not Recovered/Not Resolved]
  - Device colour issue [Not Recovered/Not Resolved]
  - Off label use [Not Recovered/Not Resolved]

NARRATIVE: CASE EVENT DATE: 20210919
